FAERS Safety Report 26179418 (Version 1)
Quarter: 2025Q4

REPORT INFORMATION
  Report Type: Spontaneous
  Country: US (occurrence: US)
  Receive Date: 20251219
  Receipt Date: 20251219
  Transmission Date: 20260117
  Serious: No
  Sender: BAYER HEALTHCARE LLC
  Company Number: US-BAYER-2025A166888

PATIENT
  Age: 50 Year
  Sex: Male

DRUGS (2)
  1. MIRALAX [Suspect]
     Active Substance: POLYETHYLENE GLYCOL 3350
     Indication: Gastrointestinal disorder
     Dosage: I TOOK A CAPFUL IN THE MORNING, AND A CAPFUL IN THE EVENING
     Route: 048
     Dates: start: 202508
  2. MIRALAX [Suspect]
     Active Substance: POLYETHYLENE GLYCOL 3350
     Indication: Surgery

REACTIONS (3)
  - Expired product administered [None]
  - Product prescribing issue [Unknown]
  - Incorrect dose administered [None]

NARRATIVE: CASE EVENT DATE: 20251126
